FAERS Safety Report 9190334 (Version 1)
Quarter: 2013Q1

REPORT INFORMATION
  Report Type: Report from Study
  Country: US (occurrence: US)
  Receive Date: 20130326
  Receipt Date: 20130326
  Transmission Date: 20140127
  Serious: Yes (Hospitalization)
  Sender: FDA-Public Use
  Company Number: US-SANOFI-AVENTIS-2013SA028722

PATIENT
  Age: 53 Year
  Sex: Female

DRUGS (2)
  1. RILUZOLE [Suspect]
     Indication: MAJOR DEPRESSION
     Route: 065
  2. SERTRALINE [Concomitant]
     Indication: MAJOR DEPRESSION

REACTIONS (6)
  - Amnestic disorder [Recovered/Resolved]
  - Dissociative fugue [Recovered/Resolved]
  - Amnesia [Recovered/Resolved]
  - Rhabdomyolysis [Unknown]
  - Troponin I increased [Unknown]
  - Blood creatine phosphokinase increased [Recovered/Resolved]
